FAERS Safety Report 17786150 (Version 7)
Quarter: 2020Q4

REPORT INFORMATION
  Report Type: Spontaneous
  Country: US (occurrence: US)
  Receive Date: 20200514
  Receipt Date: 20201229
  Transmission Date: 20210113
  Serious: Yes (Hospitalization, Other)
  Sender: FDA-Public Use
  Company Number: NVSC2020US131157

PATIENT
  Sex: Female

DRUGS (3)
  1. ZOFRAN [Suspect]
     Active Substance: ONDANSETRON HYDROCHLORIDE
     Indication: HYPEREMESIS GRAVIDARUM
     Dosage: UNK, QD
     Route: 065
     Dates: start: 200311, end: 200407
  2. ZOFRAN [Suspect]
     Active Substance: ONDANSETRON HYDROCHLORIDE
     Indication: PRODUCT USED FOR UNKNOWN INDICATION
     Dosage: 4 MG TO 8 MG, Q8H
     Route: 042
     Dates: start: 20040106, end: 20040125
  3. ZOFRAN [Suspect]
     Active Substance: ONDANSETRON HYDROCHLORIDE
     Indication: HYPEREMESIS GRAVIDARUM
     Dosage: 1 DF, Q6H, PRN
     Route: 048
     Dates: start: 20040121, end: 20040702

REACTIONS (17)
  - Decreased appetite [Unknown]
  - Constipation [Unknown]
  - Ligament sprain [Unknown]
  - Muscle strain [Unknown]
  - Abdominal pain [Unknown]
  - Injury [Unknown]
  - Gastrooesophageal reflux disease [Unknown]
  - Weight decreased [Unknown]
  - Ovarian cyst [Unknown]
  - Costovertebral angle tenderness [Unknown]
  - Product use issue [Unknown]
  - Respiratory tract infection [Unknown]
  - Maternal exposure during pregnancy [Unknown]
  - Product use in unapproved indication [Unknown]
  - Dehydration [Unknown]
  - Anaemia [Unknown]
  - Chest pain [Unknown]
